FAERS Safety Report 23956142 (Version 2)
Quarter: 2024Q2

REPORT INFORMATION
  Report Type: Spontaneous
  Country: FR (occurrence: FR)
  Receive Date: 20240610
  Receipt Date: 20240611
  Transmission Date: 20240716
  Serious: Yes (Death)
  Sender: FDA-Public Use
  Company Number: FR-ROCHE-2951884

PATIENT
  Age: 64 Year
  Sex: Male
  Weight: 69 kg

DRUGS (35)
  1. PEMETREXED [Suspect]
     Active Substance: PEMETREXED
     Indication: Non-small cell lung cancer metastatic
     Dosage: 950 MG EVERY 3 WEEKS
     Route: 042
     Dates: start: 20210610
  2. PEMETREXED [Suspect]
     Active Substance: PEMETREXED
     Dosage: 900 MG (LAST DOSE (900 MG) OF PEMETREXED WAS RECEIVED PRIOR TO SAE.)
     Route: 042
  3. TIRAGOLUMAB [Suspect]
     Active Substance: TIRAGOLUMAB
     Indication: Non-small cell lung cancer metastatic
     Dosage: ON 29SEP2021, SHE RECEIVED MOST RECENT DOSE OF BLINDED TIRAGOLUMAB PRIOR TO AE
     Route: 042
     Dates: start: 20210610
  4. ATEZOLIZUMAB [Suspect]
     Active Substance: ATEZOLIZUMAB
     Indication: Non-small cell lung cancer metastatic
     Dosage: UNK
     Route: 042
     Dates: start: 20210610
  5. PEMBROLIZUMAB [Suspect]
     Active Substance: PEMBROLIZUMAB
     Indication: Non-small cell lung cancer metastatic
     Dosage: UNK
     Route: 042
     Dates: start: 20210610
  6. CISPLATIN [Suspect]
     Active Substance: CISPLATIN
     Indication: Non-small cell lung cancer metastatic
     Dosage: LAST DOSE (139 MG) OF CISPLATIN WAS RECEIVED PRIOR TO SAE.
     Route: 042
     Dates: start: 20210610
  7. ROXITHROMYCIN [Concomitant]
     Active Substance: ROXITHROMYCIN
     Dosage: UNK
     Dates: start: 20211018, end: 20211019
  8. XANAX [Concomitant]
     Active Substance: ALPRAZOLAM
     Dosage: UNK
     Dates: start: 20210803
  9. RAMIPRIL [Concomitant]
     Active Substance: RAMIPRIL
     Indication: Hypertension
     Dosage: 10 MG, 1X/DAY
  10. LIDOCAINE [Concomitant]
     Active Substance: LIDOCAINE
     Indication: General physical health deterioration
     Dosage: UNK
     Dates: start: 202111, end: 202111
  11. MEROPENEM [Concomitant]
     Active Substance: MEROPENEM
     Indication: Sepsis
     Dosage: 1 G EVERY 0.33 DAY
     Dates: start: 20211201, end: 20211220
  12. PRIMPERAN [Concomitant]
     Active Substance: METOCLOPRAMIDE HYDROCHLORIDE
     Dosage: UNK
     Dates: start: 20210803
  13. SODIUM CITRATE\SODIUM LAURYL SULFOACETATE\SORBITOL [Concomitant]
     Active Substance: SODIUM CITRATE\SODIUM LAURYL SULFOACETATE\SORBITOL
     Indication: Prophylaxis
     Dosage: OTHER, DOSE 1 U
     Dates: start: 20210610
  14. ACETAMINOPHEN [Concomitant]
     Active Substance: ACETAMINOPHEN
     Indication: Chest pain
     Dosage: 1000 MG EVERY 3 DAYS
     Dates: start: 20210609
  15. ATENOLOL [Concomitant]
     Active Substance: ATENOLOL
     Indication: Hypertension
     Dosage: 100 MG
  16. MAGNESIUM PIDOLATE [Concomitant]
     Active Substance: MAGNESIUM PIDOLATE
     Indication: Hypomagnesaemia
     Dosage: 1
     Dates: start: 20210913
  17. VANCOMYCIN [Concomitant]
     Active Substance: VANCOMYCIN
     Indication: Sepsis
     Dosage: 900 MG EVERY 0.5 DAY
     Dates: start: 20211201, end: 20211220
  18. ATENOLOL [Concomitant]
     Active Substance: ATENOLOL
     Indication: Hypertension
     Dosage: 100 MG, 1X/DAY
  19. POTASSIUM CHLORIDE [Concomitant]
     Active Substance: POTASSIUM CHLORIDE
     Indication: Hypokalaemia
     Dosage: 1200 MG EVERY 0.5 DAY
     Dates: start: 20210803
  20. FLUCONAZOLE [Concomitant]
     Active Substance: FLUCONAZOLE
     Dosage: 200 MG
     Dates: start: 20211016, end: 20211019
  21. FLUCONAZOLE [Concomitant]
     Active Substance: FLUCONAZOLE
     Dosage: 200 MG
     Dates: start: 20210803, end: 202111
  22. SKENAN [Concomitant]
     Active Substance: MORPHINE SULFATE
     Indication: General physical health deterioration
     Dosage: 5 MG
     Dates: start: 202111, end: 2022
  23. SKENAN [Concomitant]
     Active Substance: MORPHINE SULFATE
     Dosage: 10 MG EVERY 0.5 DAY
     Dates: start: 202111, end: 2022
  24. CEFAZOLIN [Concomitant]
     Active Substance: CEFAZOLIN
     Indication: General physical health deterioration
     Dosage: 2 G
     Dates: start: 20211113, end: 202111
  25. CEFAZOLIN [Concomitant]
     Active Substance: CEFAZOLIN
     Indication: Aorto-oesophageal fistula
  26. GLYCOPYRRONIUM\INDACATEROL [Concomitant]
     Active Substance: GLYCOPYRRONIUM\INDACATEROL
     Dosage: UNK
  27. AMOXICILLIN\CLAVULANIC ACID [Concomitant]
     Active Substance: AMOXICILLIN\CLAVULANIC ACID
     Indication: Aorto-oesophageal fistula
     Dosage: 1 G EVERY 3 DAYS
     Dates: start: 20210720
  28. KARDEGIC [Concomitant]
     Active Substance: ASPIRIN DL-LYSINE
     Dosage: 160 MG, 1X/DAY
  29. PANTOPRAZOLE [Concomitant]
     Active Substance: PANTOPRAZOLE
     Dosage: 20 MG, 1X/DAY
  30. FEBUXOSTAT [Concomitant]
     Active Substance: FEBUXOSTAT
     Indication: Hyperuricaemia
     Dosage: 80 MG, 1X/DAY
  31. ALPRAZOLAM [Concomitant]
     Active Substance: ALPRAZOLAM
     Indication: Anxiety
     Dosage: 25 MG, 1X/DAY
     Dates: start: 20210722
  32. PIPERACILLIN SODIUM\TAZOBACTAM SODIUM [Concomitant]
     Active Substance: PIPERACILLIN SODIUM\TAZOBACTAM SODIUM
     Dosage: 2 G EVERY 0.5 DAY
     Dates: start: 20210629
  33. PIPERACILLIN SODIUM\TAZOBACTAM SODIUM [Concomitant]
     Active Substance: PIPERACILLIN SODIUM\TAZOBACTAM SODIUM
     Dosage: 2 G EVERY 0.5 DAY
     Dates: start: 202110, end: 20211019
  34. PIPERACILLIN SODIUM\TAZOBACTAM SODIUM [Concomitant]
     Active Substance: PIPERACILLIN SODIUM\TAZOBACTAM SODIUM
     Dosage: 4 G EVERY 0.33 DAY
     Dates: start: 20210803, end: 202111
  35. TAHOR [Concomitant]
     Active Substance: ATORVASTATIN CALCIUM
     Indication: Hypercholesterolaemia
     Dosage: 10 MG, 1X/DAY

REACTIONS (1)
  - Hypophysitis [Fatal]

NARRATIVE: CASE EVENT DATE: 20211103
